FAERS Safety Report 6260543-5 (Version None)
Quarter: 2009Q3

REPORT INFORMATION
  Report Type: 
  Country: None (occurrence: None)
  Receive Date: 20090708
  Receipt Date: 20090622
  Transmission Date: 20100115
  Serious: Yes (Hospitalization)
  Sender: FDA-Public Use
  Company Number: PHHY2009CL24986

PATIENT
  Age: 73 Year
  Sex: Female

DRUGS (2)
  1. TAREG [Suspect]
     Indication: HYPERTENSION
     Dosage: 320 MG, QD
  2. AMITRIPTYLINE [Concomitant]

REACTIONS (5)
  - FALL [None]
  - FIBULA FRACTURE [None]
  - NASOPHARYNGITIS [None]
  - SURGERY [None]
  - TIBIA FRACTURE [None]
